FAERS Safety Report 25328713 (Version 3)
Quarter: 2025Q2

REPORT INFORMATION
  Report Type: Spontaneous
  Country: US (occurrence: US)
  Receive Date: 20250519
  Receipt Date: 20250618
  Transmission Date: 20250717
  Serious: No
  Sender: HETERO
  Company Number: US-HETERO-HET2025US02366

PATIENT
  Age: 79 Year
  Sex: Female
  Weight: 58.9 kg

DRUGS (3)
  1. ATOVAQUONE [Suspect]
     Active Substance: ATOVAQUONE
     Indication: Pneumonia
     Route: 048
     Dates: start: 202504
  2. ATOVAQUONE [Suspect]
     Active Substance: ATOVAQUONE
     Indication: Hypersensitivity
  3. PREDNISONE [Concomitant]
     Active Substance: PREDNISONE
     Indication: Product used for unknown indication
     Route: 065

REACTIONS (1)
  - Rash [Recovered/Resolved]

NARRATIVE: CASE EVENT DATE: 20250506
